FAERS Safety Report 19090445 (Version 1)
Quarter: 2021Q2

REPORT INFORMATION
  Report Type: Spontaneous
  Country: US (occurrence: US)
  Receive Date: 20210405
  Receipt Date: 20210405
  Transmission Date: 20210717
  Serious: Yes (Life-Threatening, Hospitalization, Other)
  Sender: FDA-Public Use
  Company Number: US-LUPIN PHARMACEUTICALS INC.-2021-04304

PATIENT
  Age: 38 Year
  Sex: Female

DRUGS (6)
  1. QUETIAPINE TABLETS [Suspect]
     Active Substance: QUETIAPINE
     Dosage: 60 DOSAGE FORM
     Route: 048
  2. LORAZEPAM. [Concomitant]
     Active Substance: LORAZEPAM
     Indication: ANXIETY
     Dosage: 0.5 MILLIGRAM, QD (AS NECESSARY)
     Route: 065
  3. ZOLPIDEM [Suspect]
     Active Substance: ZOLPIDEM TARTRATE
     Dosage: 10 MILLIGRAM, QD (AT BEDTIME)
     Route: 065
  4. DEXTROAMPHET SACCHARAT, AMPHET ASPARTATE, DEXTROAMPHET SULFATE AND AMPHET SULFAT [Concomitant]
     Active Substance: AMPHETAMINE ASPARTATE\AMPHETAMINE SULFATE\DEXTROAMPHETAMINE SACCHARATE\DEXTROAMPHETAMINE SULFATE
     Indication: ATTENTION DEFICIT HYPERACTIVITY DISORDER
     Dosage: 30 MILLIGRAM, BID
     Route: 065
  5. ZOLPIDEM [Suspect]
     Active Substance: ZOLPIDEM TARTRATE
     Indication: INSOMNIA
     Dosage: 5 MILLIGRAM, QD (AT BEDTIME)
     Route: 065
  6. QUETIAPINE TABLETS [Suspect]
     Active Substance: QUETIAPINE
     Indication: INSOMNIA
     Dosage: 1 DOSAGE FORM, QD (AT BEDTIME) (AS NECESSARY)
     Route: 065

REACTIONS (10)
  - Suicidal ideation [Recovered/Resolved]
  - Respiratory depression [Recovered/Resolved]
  - Mood altered [Recovered/Resolved]
  - Intentional overdose [Unknown]
  - Somnolence [Unknown]
  - Fatigue [Recovered/Resolved]
  - Abnormal behaviour [Recovered/Resolved]
  - Unresponsive to stimuli [Recovered/Resolved]
  - Suicide attempt [Unknown]
  - Loss of consciousness [Recovered/Resolved]
